FAERS Safety Report 16344475 (Version 1)
Quarter: 2019Q2

REPORT INFORMATION
  Report Type: Spontaneous
  Country: IT (occurrence: IT)
  Receive Date: 20190522
  Receipt Date: 20190522
  Transmission Date: 20190711
  Serious: Yes (Hospitalization)
  Sender: FDA-Public Use
  Company Number: IT-ELI_LILLY_AND_COMPANY-IT201905007826

PATIENT
  Age: 43 Year
  Sex: Male

DRUGS (3)
  1. ALCOHOL. [Concomitant]
     Active Substance: ALCOHOL
     Indication: PRODUCT USED FOR UNKNOWN INDICATION
     Dosage: UNK UNK, UNKNOWN
     Route: 065
  2. ZYPREXA [Suspect]
     Active Substance: OLANZAPINE
     Indication: ANTIDEPRESSANT THERAPY
     Dosage: UNK, UNKNOWN
     Route: 048
  3. ZYPREXA [Suspect]
     Active Substance: OLANZAPINE
     Dosage: 140 MG, UNKNOWN
     Route: 048
     Dates: start: 20190511, end: 20190511

REACTIONS (5)
  - Substance abuse [Unknown]
  - Sopor [Unknown]
  - Feeling jittery [Unknown]
  - Overdose [Unknown]
  - Off label use [Unknown]

NARRATIVE: CASE EVENT DATE: 20190511
